FAERS Safety Report 7037741-6 (Version None)
Quarter: 2010Q4

REPORT INFORMATION
  Report Type: 
  Country: None (occurrence: None)
  Receive Date: 20101011
  Receipt Date: 20100329
  Transmission Date: 20110411
  Serious: Yes (Hospitalization)
  Sender: FDA-Public Use
  Company Number: US-BAYER-200942170NA

PATIENT
  Age: 25 Year
  Sex: Female
  Weight: 77 kg

DRUGS (6)
  1. YASMIN [Suspect]
     Indication: ORAL CONTRACEPTION
     Route: 048
     Dates: start: 20050101, end: 20070101
  2. YAZ [Suspect]
     Indication: ORAL CONTRACEPTION
     Route: 048
     Dates: start: 20070101, end: 20080101
  3. OCELLA [Suspect]
     Indication: ORAL CONTRACEPTION
     Dates: start: 20080101
  4. ALEVE (CAPLET) [Concomitant]
     Dates: start: 20010101
  5. VICODIN [Concomitant]
     Indication: ABDOMINAL PAIN LOWER
  6. LEVAQUIN [Concomitant]
     Indication: ABDOMINAL PAIN LOWER

REACTIONS (3)
  - ABDOMINAL PAIN UPPER [None]
  - BILIARY DYSKINESIA [None]
  - CHOLECYSTITIS CHRONIC [None]
